FAERS Safety Report 4559852-7 (Version None)
Quarter: 2005Q1

REPORT INFORMATION
  Report Type: 
  Country: None (occurrence: None)
  Receive Date: 20050124
  Receipt Date: 20041209
  Transmission Date: 20050727
  Serious: Yes (Life-Threatening, Hospitalization)
  Sender: FDA-Public Use
  Company Number: US-MERCK-0412USA01216

PATIENT
  Age: 76 Year
  Sex: Male

DRUGS (5)
  1. VIOXX [Suspect]
     Indication: ARTHRITIS
     Route: 048
     Dates: start: 20001230, end: 20040930
  2. VIOXX [Suspect]
     Route: 048
     Dates: start: 19990101
  3. LIPITOR [Concomitant]
     Route: 065
  4. SEREVENT [Concomitant]
     Route: 065
  5. HYZAAR [Concomitant]
     Route: 048

REACTIONS (4)
  - CEREBROVASCULAR ACCIDENT [None]
  - DIZZINESS [None]
  - ERECTILE DYSFUNCTION [None]
  - MENTAL IMPAIRMENT [None]
